FAERS Safety Report 9345535 (Version 1)
Quarter: 2013Q2

REPORT INFORMATION
  Report Type: Spontaneous
  Country: GB (occurrence: GB)
  Receive Date: 20130613
  Receipt Date: 20130613
  Transmission Date: 20140414
  Serious: Yes (Other)
  Sender: FDA-Public Use
  Company Number: GB-B.I. PHARMACEUTICALS,INC./RIDGEFIELD-2013-UK-01263UK

PATIENT
  Sex: Male

DRUGS (1)
  1. TRAJENTA [Suspect]

REACTIONS (2)
  - Vasculitis [Unknown]
  - Rash [Unknown]
